FAERS Safety Report 20506028 (Version 1)
Quarter: 2022Q1

REPORT INFORMATION
  Report Type: Spontaneous
  Country: US (occurrence: None)
  Receive Date: 20220221
  Receipt Date: 20220221
  Transmission Date: 20220424
  Serious: Yes (Disabling)
  Sender: FDA-Public Use
  Company Number: None

PATIENT
  Age: 33 Year
  Sex: Male
  Weight: 76.5 kg

DRUGS (1)
  1. FLUOXETINE [Suspect]
     Active Substance: FLUOXETINE HYDROCHLORIDE
     Dosage: OTHER QUANTITY : 1 TABLET(S);?FREQUENCY : DAILY;?
     Route: 048

REACTIONS (6)
  - Sexual dysfunction [None]
  - Loss of libido [None]
  - Genital hypoaesthesia [None]
  - Organic erectile dysfunction [None]
  - Feeling cold [None]
  - Nerve injury [None]

NARRATIVE: CASE EVENT DATE: 20210104
